FAERS Safety Report 9140139 (Version 4)
Quarter: 2013Q2

REPORT INFORMATION
  Report Type: Report from Study
  Country: NZ (occurrence: NZ)
  Receive Date: 20130305
  Receipt Date: 20130417
  Transmission Date: 20140414
  Serious: Yes (Hospitalization, Other)
  Sender: FDA-Public Use
  Company Number: PHHY2013NZ021240

PATIENT
  Age: 33 Year
  Sex: Male
  Weight: 71.9 kg

DRUGS (2)
  1. CLOZARIL [Suspect]
     Indication: SCHIZOPHRENIA
     Dosage: 700MG
     Route: 048
     Dates: start: 20010920
  2. AMISULPRIDE [Concomitant]
     Indication: SCHIZOPHRENIA
     Dosage: 800 MG, UNK
     Route: 048
     Dates: start: 20020410

REACTIONS (8)
  - Multiple fractures [Recovered/Resolved with Sequelae]
  - Suicide attempt [Recovering/Resolving]
  - Psychotic disorder [Not Recovered/Not Resolved]
  - Abnormal behaviour [Recovered/Resolved with Sequelae]
  - Delusion [Not Recovered/Not Resolved]
  - White blood cell count increased [Recovered/Resolved]
  - Neutrophil count increased [Recovered/Resolved]
  - Urinary incontinence [Not Recovered/Not Resolved]
